FAERS Safety Report 18894091 (Version 2)
Quarter: 2021Q1

REPORT INFORMATION
  Report Type: Spontaneous
  Country: US (occurrence: US)
  Receive Date: 20210215
  Receipt Date: 20210226
  Transmission Date: 20210420
  Serious: Yes (Other)
  Sender: FDA-Public Use
  Company Number: US-PFIZER INC-2021099740

PATIENT
  Age: 64 Year
  Sex: Male

DRUGS (3)
  1. EFFEXOR XR [Suspect]
     Active Substance: VENLAFAXINE HYDROCHLORIDE
     Dosage: 600 TO 700 MG DAILY
  2. EFFEXOR XR [Suspect]
     Active Substance: VENLAFAXINE HYDROCHLORIDE
     Dosage: 75 MG (3?4 WEEKS AGO DOWN)
  3. EFFEXOR XR [Suspect]
     Active Substance: VENLAFAXINE HYDROCHLORIDE
     Dosage: 225 MG, DAILY

REACTIONS (13)
  - Disturbance in attention [Unknown]
  - Hepatic cirrhosis [Unknown]
  - Antidepressant discontinuation syndrome [Unknown]
  - Fatigue [Unknown]
  - Headache [Unknown]
  - Sleep deficit [Unknown]
  - Overdose [Unknown]
  - Amnesia [Unknown]
  - Hypersomnia [Unknown]
  - Memory impairment [Unknown]
  - Non-alcoholic steatohepatitis [Unknown]
  - Hepatic steatosis [Unknown]
  - Dysstasia [Unknown]
